FAERS Safety Report 8046922-4 (Version None)
Quarter: 2012Q1

REPORT INFORMATION
  Report Type: 
  Country: None (occurrence: None)
  Receive Date: 20120116
  Receipt Date: 20120106
  Transmission Date: 20120608
  Serious: Yes (Hospitalization, Other)
  Sender: FDA-Public Use
  Company Number: US-BAYER-2011-105086

PATIENT
  Age: 37 Year
  Sex: Female
  Weight: 79 kg

DRUGS (3)
  1. DROSPIRENONE AND ETHINYL ESTRADIOL [Suspect]
     Indication: PREMENSTRUAL SYNDROME
     Dosage: UNK
     Dates: start: 20090405, end: 20091214
  2. AZITHROMYCIN [Concomitant]
  3. TUMERIC K [Concomitant]
     Dosage: UNK UNK, QD

REACTIONS (6)
  - GALLBLADDER INJURY [None]
  - ABDOMINAL PAIN [None]
  - DYSPEPSIA [None]
  - INJURY [None]
  - BILIARY DYSKINESIA [None]
  - CHOLECYSTITIS CHRONIC [None]
